FAERS Safety Report 8153825-3 (Version None)
Quarter: 2012Q1

REPORT INFORMATION
  Report Type: 
  Country: None (occurrence: None)
  Receive Date: 20120221
  Receipt Date: 20120217
  Transmission Date: 20120608
  Serious: Yes (Hospitalization)
  Sender: FDA-Public Use
  Company Number: DE-GLAXOSMITHKLINE-D0074533A

PATIENT
  Age: 14 Year
  Sex: Female

DRUGS (1)
  1. DUAC [Suspect]
     Indication: RASH PUSTULAR
     Route: 061
     Dates: start: 20120207

REACTIONS (5)
  - SWELLING [None]
  - PRURITUS [None]
  - HYPERSENSITIVITY [None]
  - ERYTHEMA [None]
  - ECZEMA [None]
